FAERS Safety Report 4635158-2 (Version None)
Quarter: 2005Q2

REPORT INFORMATION
  Report Type: 
  Country: None (occurrence: None)
  Receive Date: 20050414
  Receipt Date: 20050407
  Transmission Date: 20051028
  Serious: Yes (Death)
  Sender: FDA-Public Use
  Company Number: US-GLAXOSMITHKLINE-A0553416A

PATIENT
  Age: 57 Year
  Sex: Female

DRUGS (1)
  1. PAXIL CR [Suspect]
     Indication: DEPRESSION
     Route: 048

REACTIONS (2)
  - COMPLETED SUICIDE [None]
  - PHARMACEUTICAL PRODUCT COMPLAINT [None]
